FAERS Safety Report 4886111-5 (Version None)
Quarter: 2006Q1

REPORT INFORMATION
  Report Type: 
  Country: None (occurrence: None)
  Receive Date: 20060117
  Receipt Date: 20051109
  Transmission Date: 20060701
  Serious: Yes (Other)
  Sender: FDA-Public Use
  Company Number: 2005154147

PATIENT
  Age: 79 Year
  Sex: Male

DRUGS (10)
  1. LYRICA [Suspect]
     Indication: NEURALGIA
     Dosage: 300 MG (150 MG, 2 IN 1 D), ORAL
     Route: 048
     Dates: start: 20051013, end: 20051022
  2. AMIODARONE HCL [Suspect]
     Indication: ATRIAL FIBRILLATION
     Dosage: 200 MG (200 MG, 1 IN 1 D), ORAL
     Route: 048
     Dates: start: 20020101, end: 20051025
  3. WARFARIN SODIUM [Concomitant]
  4. ORAMORPH SR [Concomitant]
  5. CLOPIDOGREL BISULFATE [Concomitant]
  6. SIMVASTATIN [Concomitant]
  7. FUROSEMIDE [Concomitant]
  8. CO-DANTHRAMER (DANTRON, POLOXAMER) [Concomitant]
  9. MORPHINE [Concomitant]
  10. ISOSORBIDE MONONITRATE [Concomitant]

REACTIONS (9)
  - ATRIOVENTRICULAR BLOCK COMPLETE [None]
  - BLISTER [None]
  - BRADYCARDIA [None]
  - DRUG INTERACTION [None]
  - NEURALGIA [None]
  - RASH ERYTHEMATOUS [None]
  - RASH GENERALISED [None]
  - SKIN DISCOLOURATION [None]
  - SKIN OEDEMA [None]
